FAERS Safety Report 17955934 (Version 4)
Quarter: 2021Q2

REPORT INFORMATION
  Report Type: Report from Study
  Country: BR (occurrence: BR)
  Receive Date: 20200629
  Receipt Date: 20210414
  Transmission Date: 20210717
  Serious: Yes (Other)
  Sender: FDA-Public Use
  Company Number: NVSC2020BR148215

PATIENT
  Age: 58 Year
  Sex: Female
  Weight: 75 kg

DRUGS (5)
  1. COSENTYX [Suspect]
     Active Substance: SECUKINUMAB
     Indication: RHEUMATIC DISORDER
     Dosage: UNK (LAST APPLICATION)
     Route: 065
     Dates: start: 20210303
  2. COSENTYX [Suspect]
     Active Substance: SECUKINUMAB
     Indication: RHEUMATOID ARTHRITIS
     Dosage: 300 MG, (2 INJECTIONS PER APPLICATION)
     Route: 065
     Dates: start: 20200402, end: 2020
  3. SPIRONOLACTONE. [Concomitant]
     Active Substance: SPIRONOLACTONE
     Indication: BLOOD PRESSURE ABNORMAL
     Dosage: 25 MG, BID (SIX MONTHS AGO)
     Route: 048
  4. COSENTYX [Suspect]
     Active Substance: SECUKINUMAB
     Indication: PSORIATIC ARTHROPATHY
     Dosage: 300 MG, QMO (ONE SYRINGE ON EACH LEG)
     Route: 058
     Dates: start: 20200402
  5. METFORMIN [Concomitant]
     Active Substance: METFORMIN HYDROCHLORIDE
     Indication: DIABETES MELLITUS
     Dosage: 850 MG, QD (ONE TABLET, 3 YEARS AGO)
     Route: 048

REACTIONS (19)
  - Allergic cough [Recovered/Resolved]
  - Product dose omission issue [Unknown]
  - Pain [Recovering/Resolving]
  - Hand deformity [Recovering/Resolving]
  - Back pain [Not Recovered/Not Resolved]
  - Malaise [Recovered/Resolved]
  - Movement disorder [Recovered/Resolved]
  - Peripheral swelling [Not Recovered/Not Resolved]
  - Pruritus [Recovered/Resolved]
  - Insomnia [Recovered/Resolved]
  - Swelling [Not Recovered/Not Resolved]
  - Product availability issue [Unknown]
  - Hypersensitivity [Recovered/Resolved]
  - Hepatitis [Not Recovered/Not Resolved]
  - Product use in unapproved indication [Unknown]
  - Arthritis [Recovering/Resolving]
  - Pain in extremity [Not Recovered/Not Resolved]
  - Arthralgia [Not Recovered/Not Resolved]
  - Cough [Recovered/Resolved]

NARRATIVE: CASE EVENT DATE: 2020
